FAERS Safety Report 19015138 (Version 1)
Quarter: 2021Q1

REPORT INFORMATION
  Report Type: Spontaneous
  Country: US (occurrence: US)
  Receive Date: 20210317
  Receipt Date: 20210317
  Transmission Date: 20210420
  Serious: Yes (Death)
  Sender: FDA-Public Use
  Company Number: US-OCTA-LIT01021US

PATIENT
  Age: 42 Year
  Sex: Male

DRUGS (6)
  1. CEFTAZIDIME. [Concomitant]
     Active Substance: CEFTAZIDIME
     Indication: PNEUMONIA BACTERIAL
  2. MEROPENEM. [Concomitant]
     Active Substance: MEROPENEM
     Indication: SINUSITIS
  3. VANCOMYCIN [Concomitant]
     Active Substance: VANCOMYCIN
     Indication: STAPHYLOCOCCAL INFECTION
     Dosage: STARTED ON HOSPITAL DAY 6
  4. CONVALESCENT PLASMA [Concomitant]
     Active Substance: HUMAN PLASMA
     Indication: PRODUCT USED FOR UNKNOWN INDICATION
     Dosage: ON HOSPITAL DAY 5
  5. HUMAN NORMAL IMMUNOGLOBULIN (IV) [Suspect]
     Active Substance: HUMAN IMMUNOGLOBULIN G
     Indication: PRODUCT USED FOR UNKNOWN INDICATION
     Dosage: 40G ON HOSPITAL DAY 9; 1G/KG HOSPITAL DAYS 14,15
     Route: 042
  6. REMDESIVIR. [Concomitant]
     Active Substance: REMDESIVIR
     Indication: PRODUCT USED FOR UNKNOWN INDICATION
     Dosage: STARTED ON HOSPITAL DAY 5

REACTIONS (3)
  - Hypotension [Fatal]
  - Cardiac arrest [Fatal]
  - Hypoxia [Fatal]
